FAERS Safety Report 15458271 (Version 1)
Quarter: 2018Q4

REPORT INFORMATION
  Report Type: Report from Study
  Country: PT (occurrence: PT)
  Receive Date: 20181003
  Receipt Date: 20181003
  Transmission Date: 20190204
  Serious: Yes (Life-Threatening, Other)
  Sender: FDA-Public Use
  Company Number: PT-AUROBINDO-AUR-APL-2018-048159

PATIENT
  Age: 27 Year
  Sex: Male

DRUGS (18)
  1. FLUCONAZOLE. [Suspect]
     Active Substance: FLUCONAZOLE
     Indication: CHRONIC HEPATITIS C
     Dosage: 1 ML OF TRIAMCINOLONE 40 MG INJECTED ()
     Route: 065
  2. FLUCONAZOLE. [Suspect]
     Active Substance: FLUCONAZOLE
     Indication: HEPATITIS C
  3. LOPINAVIR + RITONAVIR [Suspect]
     Active Substance: LOPINAVIR\RITONAVIR
     Indication: CHRONIC HEPATITIS C
     Dosage: UNK
     Route: 065
  4. METHADONE HYDROCHLORIDE. [Suspect]
     Active Substance: METHADONE HYDROCHLORIDE
     Indication: HEPATITIS C
     Dosage: 1 ML OF TRIAMCINOLONE 40 MG INJECTED ()
     Route: 065
  5. STAVUDINE. [Suspect]
     Active Substance: STAVUDINE
     Indication: HEPATITIS C
     Dosage: 1 ML OF TRIAMCINOLONE 40 MG INJECTED ()
     Route: 065
  6. LOPINAVIR + RITONAVIR [Suspect]
     Active Substance: LOPINAVIR\RITONAVIR
     Indication: HIV INFECTION
     Dosage: 1 ML OF TRIAMCINOLONE 40 MG INJECTED ()
     Route: 065
  7. METHADONE HYDROCHLORIDE. [Suspect]
     Active Substance: METHADONE HYDROCHLORIDE
     Indication: CHRONIC HEPATITIS C
  8. OLANZAPINE. [Suspect]
     Active Substance: OLANZAPINE
     Indication: CHRONIC HEPATITIS C
     Dosage: UNK
     Route: 065
  9. OLANZAPINE. [Suspect]
     Active Substance: OLANZAPINE
     Indication: HIV INFECTION
  10. STAVUDINE. [Suspect]
     Active Substance: STAVUDINE
     Indication: CHRONIC HEPATITIS C
  11. OLANZAPINE. [Suspect]
     Active Substance: OLANZAPINE
     Indication: HEPATITIS C
     Dosage: 1 ML OF TRIAMCINOLONE 40 MG INJECTED ()
     Route: 065
  12. FLUCONAZOLE. [Suspect]
     Active Substance: FLUCONAZOLE
     Indication: HIV INFECTION
  13. METHADONE HYDROCHLORIDE. [Suspect]
     Active Substance: METHADONE HYDROCHLORIDE
     Indication: HIV INFECTION
  14. LOPINAVIR + RITONAVIR [Suspect]
     Active Substance: LOPINAVIR\RITONAVIR
     Indication: HEPATITIS C
  15. STAVUDINE. [Suspect]
     Active Substance: STAVUDINE
     Indication: HIV INFECTION
  16. DIDANOSINE. [Suspect]
     Active Substance: DIDANOSINE
     Indication: CHRONIC HEPATITIS C
     Dosage: 1 ML OF TRIAMCINOLONE 40 MG INJECTED ()
     Route: 065
  17. DIDANOSINE. [Suspect]
     Active Substance: DIDANOSINE
     Indication: HEPATITIS C
  18. DIDANOSINE. [Suspect]
     Active Substance: DIDANOSINE
     Indication: HIV INFECTION

REACTIONS (2)
  - Drug-induced liver injury [Unknown]
  - Hepatic fibrosis [Unknown]
